FAERS Safety Report 6851496-7 (Version None)
Quarter: 2010Q3

REPORT INFORMATION
  Report Type: 
  Country: None (occurrence: None)
  Receive Date: 20100717
  Receipt Date: 20080117
  Transmission Date: 20110219
  Serious: No
  Sender: FDA-Public Use
  Company Number: US-PFIZER INC-2008006893

PATIENT
  Sex: Female
  Weight: 75 kg

DRUGS (4)
  1. CHANTIX [Suspect]
     Indication: SMOKING CESSATION THERAPY
     Dates: start: 20070101
  2. ZOLOFT [Concomitant]
  3. NYQUIL SINUS [Concomitant]
  4. IBUPROFEN [Concomitant]

REACTIONS (7)
  - DIARRHOEA [None]
  - FEELING ABNORMAL [None]
  - FEELING HOT [None]
  - FLATULENCE [None]
  - HEADACHE [None]
  - INFLUENZA [None]
  - NAUSEA [None]
